FAERS Safety Report 25882078 (Version 2)
Quarter: 2025Q4

REPORT INFORMATION
  Report Type: Report from Study
  Country: US (occurrence: US)
  Receive Date: 20251006
  Receipt Date: 20251130
  Transmission Date: 20260117
  Serious: Yes (Other)
  Sender: ALEXION PHARMACEUTICALS
  Company Number: US-AstraZeneca-CH-00960905A

PATIENT

DRUGS (1)
  1. ULTOMIRIS [Suspect]
     Active Substance: RAVULIZUMAB-CWVZ
     Indication: Myasthenia gravis
     Dosage: UNK
     Route: 065

REACTIONS (8)
  - Dysstasia [Unknown]
  - Fall [Unknown]
  - Dizziness [Unknown]
  - Incoherent [Unknown]
  - Asthenia [Unknown]
  - Magnetic resonance imaging head [Unknown]
  - Blepharospasm [Unknown]
  - Diplopia [Unknown]
